FAERS Safety Report 14837177 (Version 1)
Quarter: 2018Q2

REPORT INFORMATION
  Report Type: Spontaneous
  Country: US (occurrence: US)
  Receive Date: 20180418
  Receipt Date: 20180418
  Transmission Date: 20180711
  Serious: Yes (Disabling)
  Sender: FDA-Public Use
  Company Number: None

PATIENT
  Age: 85 Year
  Sex: Female
  Weight: 83.46 kg

DRUGS (9)
  1. ASPRIN [Concomitant]
     Active Substance: ASPIRIN
  2. GABAPENTIN. [Suspect]
     Active Substance: GABAPENTIN
     Indication: ASTHMA
     Route: 048
     Dates: start: 20180205, end: 20180206
  3. VITAMIN B-6 [Concomitant]
     Active Substance: PYRIDOXINE
  4. CENTRUM SILVER [Concomitant]
     Active Substance: MINERALS\VITAMINS
  5. FAMOTIDINE. [Concomitant]
     Active Substance: FAMOTIDINE
  6. HYDROCHLOROTHIAZIDE. [Concomitant]
     Active Substance: HYDROCHLOROTHIAZIDE
  7. FISH OIL [Concomitant]
     Active Substance: FISH OIL
  8. GLUCOSAMINE + CHONDROITIN [Concomitant]
  9. GABAPENTIN. [Suspect]
     Active Substance: GABAPENTIN
     Indication: COUGH
     Route: 048
     Dates: start: 20180205, end: 20180206

REACTIONS (11)
  - Back pain [None]
  - Throat tightness [None]
  - Pain in extremity [None]
  - Muscle spasms [None]
  - Pain [None]
  - Arthralgia [None]
  - Headache [None]
  - Musculoskeletal stiffness [None]
  - Flank pain [None]
  - Oropharyngeal pain [None]
  - Urine odour abnormal [None]

NARRATIVE: CASE EVENT DATE: 201802
